FAERS Safety Report 8191826-X (Version None)
Quarter: 2012Q1

REPORT INFORMATION
  Report Type: 
  Country: None (occurrence: None)
  Receive Date: 20120307
  Receipt Date: 20120228
  Transmission Date: 20120608
  Serious: Yes (Hospitalization)
  Sender: FDA-Public Use
  Company Number: FR-PFIZER INC-2012058338

PATIENT
  Age: 91 Year
  Sex: Female

DRUGS (6)
  1. PERINDOPRIL ERBUMINE [Suspect]
     Dosage: 4 MG DAILY
     Route: 048
     Dates: start: 20080101
  2. MEMANTINE HYDROCHLORIDE [Suspect]
     Dosage: 20 MG DAILY
     Route: 048
     Dates: start: 20090101
  3. PANTOPRAZOLE [Suspect]
     Dosage: 20 MG DAILY
     Route: 048
     Dates: start: 20111222
  4. CORVASAL [Suspect]
     Dosage: 8 MG DAILY
     Route: 048
     Dates: start: 20080101
  5. EUPHYTOSE [Suspect]
     Dosage: 1 DF DAILY
     Route: 048
     Dates: start: 20111222, end: 20120103
  6. FERROUS SULFATE TAB [Concomitant]

REACTIONS (1)
  - PEMPHIGOID [None]
